FAERS Safety Report 7653448-6 (Version None)
Quarter: 2011Q3

REPORT INFORMATION
  Report Type: 
  Country: None (occurrence: None)
  Receive Date: 20110803
  Receipt Date: 20110727
  Transmission Date: 20111222
  Serious: Yes (Other)
  Sender: FDA-Public Use
  Company Number: FR-PFIZER INC-2011171696

PATIENT
  Age: 62 Year
  Sex: Male

DRUGS (1)
  1. SUTENT [Suspect]
     Indication: RENAL CANCER
     Dosage: 50 MG, 1X/DAY, 4 WEEKS ON/2 WEEKS OFF
     Route: 048
     Dates: start: 20110501

REACTIONS (6)
  - CHROMATURIA [None]
  - BLOOD LACTATE DEHYDROGENASE INCREASED [None]
  - TRANSAMINASES INCREASED [None]
  - WEIGHT DECREASED [None]
  - DECREASED APPETITE [None]
  - BACK PAIN [None]
